FAERS Safety Report 14228047 (Version 2)
Quarter: 2017Q4

REPORT INFORMATION
  Report Type: Report from Study
  Country: TW (occurrence: TW)
  Receive Date: 20171127
  Receipt Date: 20171130
  Transmission Date: 20180321
  Serious: Yes (Death, Other)
  Sender: FDA-Public Use
  Company Number: TW-ACTELION-A-US2017-163231

PATIENT
  Sex: Female

DRUGS (7)
  1. DIGOXIN. [Concomitant]
     Active Substance: DIGOXIN
  2. AMIODARONE [Concomitant]
     Active Substance: AMIODARONE
  3. SPIRONOLACTONE. [Concomitant]
     Active Substance: SPIRONOLACTONE
  4. OPSUMIT [Concomitant]
     Active Substance: MACITENTAN
  5. VENTAVIS [Suspect]
     Active Substance: ILOPROST
     Indication: PULMONARY ARTERIAL HYPERTENSION
     Dosage: UNK, Q4HRS
     Route: 055
     Dates: start: 20130530
  6. SILDENAFIL. [Concomitant]
     Active Substance: SILDENAFIL
  7. FUROSEMIDE. [Concomitant]
     Active Substance: FUROSEMIDE

REACTIONS (6)
  - Portal hypertension [Unknown]
  - Jaundice [Not Recovered/Not Resolved]
  - Liver disorder [Unknown]
  - Platelet count decreased [Not Recovered/Not Resolved]
  - Death [Fatal]
  - Haemorrhage [Unknown]

NARRATIVE: CASE EVENT DATE: 20171113
